FAERS Safety Report 14182332 (Version 1)
Quarter: 2017Q4

REPORT INFORMATION
  Report Type: Spontaneous
  Country: HK (occurrence: HK)
  Receive Date: 20171113
  Receipt Date: 20171113
  Transmission Date: 20180321
  Serious: Yes (Other)
  Sender: FDA-Public Use
  Company Number: HK-ROCHE-2016854

PATIENT
  Age: 49 Year
  Sex: Male

DRUGS (4)
  1. PRED FORTE [Concomitant]
     Active Substance: PREDNISOLONE ACETATE
     Route: 061
  2. PREDNISOLONE. [Concomitant]
     Active Substance: PREDNISOLONE
     Route: 048
  3. PEG-INTERFERON ALFA 2A [Suspect]
     Active Substance: PEGINTERFERON ALFA-2A
     Indication: VIRAL HEPATITIS CARRIER
     Route: 065
     Dates: start: 200712, end: 200806
  4. RIBAVIRIN. [Suspect]
     Active Substance: RIBAVIRIN
     Indication: VIRAL HEPATITIS CARRIER
     Route: 062
     Dates: start: 200712, end: 200806

REACTIONS (1)
  - Vogt-Koyanagi-Harada syndrome [Unknown]
